FAERS Safety Report 7928355-1 (Version None)
Quarter: 2011Q4

REPORT INFORMATION
  Report Type: 
  Country: None (occurrence: None)
  Receive Date: 20111118
  Receipt Date: 20111116
  Transmission Date: 20120403
  Serious: Yes (Other)
  Sender: FDA-Public Use
  Company Number: US-JNJFOC-20111012479

PATIENT
  Sex: Female

DRUGS (8)
  1. STELARA [Suspect]
     Indication: PSORIASIS
     Route: 058
     Dates: start: 20110101
  2. FLUOCINONIDE [Concomitant]
     Route: 061
     Dates: start: 20100419
  3. TRIAMCINOLONE [Concomitant]
     Route: 061
     Dates: start: 20111020
  4. CYANOCOBALAMIN [Concomitant]
     Route: 050
     Dates: start: 20110817
  5. GABAPENTIN [Concomitant]
     Route: 048
     Dates: start: 20110901
  6. ATENOLOL AND CHLORTHALIDONE [Concomitant]
     Dosage: 50/25
     Route: 048
     Dates: start: 20110901
  7. TRIAZOLAM [Concomitant]
     Route: 048
     Dates: start: 20110425
  8. KLOR-CON [Concomitant]
     Route: 048
     Dates: start: 20110616

REACTIONS (1)
  - RASH PRURITIC [None]
